FAERS Safety Report 25917511 (Version 2)
Quarter: 2025Q4

REPORT INFORMATION
  Report Type: Spontaneous
  Country: GB (occurrence: GB)
  Receive Date: 20251014
  Receipt Date: 20251221
  Transmission Date: 20260118
  Serious: Yes (Death, Hospitalization, Other)
  Sender: AUROBINDO
  Company Number: GB-BRISTOL-MYERS SQUIBB COMPANY-2025-133237

PATIENT
  Sex: Male

DRUGS (8)
  1. FLUOROURACIL\LEUCOVORIN CALCIUM\OXALIPLATIN [Suspect]
     Active Substance: FLUOROURACIL\LEUCOVORIN CALCIUM\OXALIPLATIN
     Indication: Gastrointestinal carcinoma
     Route: 065
  2. FLUOROURACIL\LEUCOVORIN CALCIUM\OXALIPLATIN [Suspect]
     Active Substance: FLUOROURACIL\LEUCOVORIN CALCIUM\OXALIPLATIN
     Indication: Gastrointestinal carcinoma
     Route: 065
  3. OPDIVO [Suspect]
     Active Substance: NIVOLUMAB
     Indication: Gastrointestinal carcinoma
     Dosage: UNK
     Route: 065
     Dates: start: 20241003, end: 20251113
  4. METHYLPREDNISOLONE [Concomitant]
     Active Substance: METHYLPREDNISOLONE
     Indication: Product used for unknown indication
     Dosage: 2 MILLIGRAM/KILOGRAM
  5. ATORVASTATIN [Concomitant]
     Active Substance: ATORVASTATIN
     Indication: Cerebrovascular accident
     Dosage: 80 MILLIGRAM
     Route: 061
  6. BISOPROLOL [Concomitant]
     Active Substance: BISOPROLOL
     Indication: Cerebrovascular accident
     Dosage: 2.5 MILLIGRAM
     Route: 061
  7. DALTEPARIN [Concomitant]
     Active Substance: DALTEPARIN
     Indication: Deep vein thrombosis
     Dosage: 15000 IU INTERNATIONAL UNIT(S)
  8. LANSOPRAZOLE [Concomitant]
     Active Substance: LANSOPRAZOLE
     Indication: Gastrooesophageal reflux disease
     Dosage: 30 MILLIGRAM LONGTERM
     Route: 061

REACTIONS (3)
  - Immune-mediated encephalitis [Fatal]
  - Antiphospholipid syndrome [Unknown]
  - Immune thrombocytopenia [Unknown]
